FAERS Safety Report 7658359-8 (Version None)
Quarter: 2011Q3

REPORT INFORMATION
  Report Type: 
  Country: None (occurrence: None)
  Receive Date: 20110805
  Receipt Date: 20110726
  Transmission Date: 20111222
  Serious: No
  Sender: FDA-Public Use
  Company Number: US-JNJFOC-20110711827

PATIENT
  Sex: Female
  Weight: 70.31 kg

DRUGS (2)
  1. DURAGESIC-100 [Suspect]
     Indication: BACK PAIN
     Route: 062
     Dates: start: 20110501
  2. UNKNOWN MEDICATION [Concomitant]
     Indication: PRODUCT USED FOR UNKNOWN INDICATION
     Route: 065

REACTIONS (2)
  - PRODUCT ADHESION ISSUE [None]
  - WRONG TECHNIQUE IN DRUG USAGE PROCESS [None]
